FAERS Safety Report 5491824-0 (Version None)
Quarter: 2007Q4

REPORT INFORMATION
  Report Type: 
  Country: None (occurrence: None)
  Receive Date: 20071019
  Receipt Date: 20071019
  Transmission Date: 20080405
  Serious: Yes (Hospitalization)
  Sender: FDA-Public Use
  Company Number: None

PATIENT
  Sex: Female
  Weight: 102 kg

DRUGS (2)
  1. CISPLATIN [Suspect]
     Dosage: 50 MG
  2. ACE INHIBITOR AMINOGLYCOSIDES [Concomitant]

REACTIONS (2)
  - DEHYDRATION [None]
  - POSTOPERATIVE WOUND INFECTION [None]
